FAERS Safety Report 10334914 (Version 1)
Quarter: 2014Q3

REPORT INFORMATION
  Report Type: Spontaneous
  Country: US (occurrence: None)
  Receive Date: 20140722
  Receipt Date: 20140722
  Transmission Date: 20150326
  Serious: No
  Sender: FDA-Public Use
  Company Number: None

PATIENT
  Age: 70 Year
  Sex: Female
  Weight: 117.94 kg

DRUGS (14)
  1. HUMALOG [Concomitant]
     Active Substance: INSULIN LISPRO
  2. LISINOP/HCTZ GENERIC FOR PRINZIDE [Concomitant]
     Active Substance: HYDROCHLOROTHIAZIDE\LISINOPRIL
  3. PRESERVISION LUTEIN [Concomitant]
     Active Substance: MINERALS\VITAMINS
  4. LEVEMIR [Concomitant]
     Active Substance: INSULIN DETEMIR
  5. METFORMIN [Concomitant]
     Active Substance: METFORMIN HYDROCHLORIDE
  6. ZYRTEC [Concomitant]
     Active Substance: CETIRIZINE HYDROCHLORIDE
  7. LEVOTHYROXIN [Concomitant]
     Active Substance: LEVOTHYROXINE
  8. CALCIUM [Concomitant]
     Active Substance: CALCIUM
  9. LEVOFLOXACIN 7371153 REF.# O QTY:10 DAW ODS 10 [Suspect]
     Active Substance: LEVOFLOXACIN
     Indication: SINUSITIS
     Dosage: 1 TABLET ONCE DAILY MOUTH
     Route: 048
  10. AMLODIPINE BESYLATE. [Concomitant]
     Active Substance: AMLODIPINE BESYLATE
  11. WARFARIN [Concomitant]
     Active Substance: WARFARIN
  12. TIMED RELEASE VIT C. [Concomitant]
  13. MULTI-VIT [Concomitant]
     Active Substance: VITAMINS
  14. INSULIN [Concomitant]
     Active Substance: INSULIN NOS

REACTIONS (3)
  - Hallucination [None]
  - Tendon disorder [None]
  - Insomnia [None]

NARRATIVE: CASE EVENT DATE: 20140702
